FAERS Safety Report 10091364 (Version 1)
Quarter: 2014Q2

REPORT INFORMATION
  Report Type: Spontaneous
  Country: US (occurrence: US)
  Receive Date: 20140421
  Receipt Date: 20140421
  Transmission Date: 20141212
  Serious: No
  Sender: FDA-Public Use
  Company Number: US-009507513-1404USA009402

PATIENT
  Sex: Female

DRUGS (6)
  1. JANUVIA [Suspect]
     Indication: DIABETES MELLITUS
     Dosage: 100 MG / ONCE DAILY
     Route: 048
     Dates: end: 20140414
  2. METFORMIN [Concomitant]
  3. ACTOS [Concomitant]
  4. TOPROL XL TABLETS [Concomitant]
  5. LOSARTAN POTASSIUM TABLETS [Concomitant]
  6. LIPITOR [Concomitant]

REACTIONS (2)
  - Lip swelling [Unknown]
  - Urticaria [Not Recovered/Not Resolved]
